FAERS Safety Report 9026670 (Version 1)
Quarter: 2013Q1

REPORT INFORMATION
  Report Type: Spontaneous
  Country: US (occurrence: None)
  Receive Date: 20130114
  Receipt Date: 20130114
  Transmission Date: 20140127
  Serious: Yes (Life-Threatening)
  Sender: FDA-Public Use
  Company Number: None

PATIENT
  Age: 36 Year
  Sex: Female
  Weight: 61.24 kg

DRUGS (1)
  1. QUETIAPINE FUMARATE [Suspect]
     Indication: AFFECTIVE DISORDER
     Dosage: @NIGHT
     Dates: end: 20121208

REACTIONS (1)
  - Electrocardiogram QT prolonged [None]
